FAERS Safety Report 7514233-9 (Version None)
Quarter: 2011Q2

REPORT INFORMATION
  Report Type: 
  Country: None (occurrence: None)
  Receive Date: 20110531
  Receipt Date: 20110525
  Transmission Date: 20111010
  Serious: Yes (Death)
  Sender: FDA-Public Use
  Company Number: JP-BRISTOL-MYERS SQUIBB COMPANY-15774912

PATIENT
  Age: 62 Year
  Sex: Male
  Weight: 45 kg

DRUGS (5)
  1. CISPLATIN [Suspect]
     Indication: HYPOPHARYNGEAL CANCER
     Route: 041
     Dates: start: 20110228, end: 20110412
  2. DECADRON [Concomitant]
     Dates: end: 20110326
  3. FLUOROURACIL [Suspect]
     Dates: end: 20110326
  4. TAXOTERE [Suspect]
     Indication: HYPOPHARYNGEAL CANCER
     Route: 041
     Dates: start: 20110228, end: 20110412
  5. ALOXI [Concomitant]
     Dates: end: 20110326

REACTIONS (3)
  - BONE MARROW FAILURE [None]
  - CARDIAC ARREST [None]
  - SEPTIC SHOCK [None]
